FAERS Safety Report 23566858 (Version 1)
Quarter: 2024Q1

REPORT INFORMATION
  Report Type: Spontaneous
  Country: US (occurrence: US)
  Receive Date: 20240226
  Receipt Date: 20240226
  Transmission Date: 20240410
  Serious: No
  Sender: FDA-Public Use
  Company Number: US-AMNEAL PHARMACEUTICALS-2023-AMRX-02443

PATIENT
  Age: 83 Year
  Sex: Female

DRUGS (1)
  1. RYTARY [Suspect]
     Active Substance: CARBIDOPA\LEVODOPA
     Indication: Parkinson^s disease
     Dosage: 4 CAPSULES, TID (23.75/95 MG)
     Route: 048
     Dates: start: 20230628, end: 20230628

REACTIONS (2)
  - Chills [Unknown]
  - Paraesthesia [Unknown]

NARRATIVE: CASE EVENT DATE: 20230628
